FAERS Safety Report 4827975-0 (Version None)
Quarter: 2005Q4

REPORT INFORMATION
  Report Type: 
  Country: None (occurrence: None)
  Receive Date: 20051110
  Receipt Date: 20051031
  Transmission Date: 20060501
  Serious: Yes (Hospitalization)
  Sender: FDA-Public Use
  Company Number: 2005-04241

PATIENT
  Age: 54 Year
  Sex: Male
  Weight: 107.5 kg

DRUGS (14)
  1. PREDNISONE [Suspect]
     Indication: PERICARDITIS
     Dosage: SEE IMAGE
     Route: 048
     Dates: start: 20040101, end: 20050301
  2. PREDNISONE [Suspect]
     Indication: PERICARDITIS
     Dosage: SEE IMAGE
     Route: 048
     Dates: start: 20050301, end: 20051024
  3. LANTUS [Suspect]
     Indication: DIABETES MELLITUS NON-INSULIN-DEPENDENT
     Dosage: SEE IMAGE
     Route: 058
  4. HUMALOG [Concomitant]
  5. DIGOXIN [Concomitant]
  6. PLAVIX [Concomitant]
  7. GLIPIZIDE [Concomitant]
  8. FLECAINIDE ACETATE [Concomitant]
  9. SIMVASTATIN [Concomitant]
  10. AVANDIA [Concomitant]
  11. POTASSIUM (POTASSIUM) [Concomitant]
  12. ISOSORBIDE MONONITRATE [Concomitant]
  13. ATENOLOL [Concomitant]
  14. ^FOLBIC^ [Concomitant]

REACTIONS (4)
  - CONDITION AGGRAVATED [None]
  - GLYCOSYLATED HAEMOGLOBIN INCREASED [None]
  - HYPERGLYCAEMIA [None]
  - PERICARDITIS [None]
